FAERS Safety Report 14983996 (Version 1)
Quarter: 2018Q2

REPORT INFORMATION
  Report Type: Spontaneous
  Country: US (occurrence: US)
  Receive Date: 20180607
  Receipt Date: 20180607
  Transmission Date: 20180711
  Serious: Yes (Hospitalization, Other)
  Sender: FDA-Public Use
  Company Number: US-BAYER-2018-104542

PATIENT
  Age: 47 Year
  Sex: Male
  Weight: 58.96 kg

DRUGS (1)
  1. ALEVE [Suspect]
     Active Substance: NAPROXEN SODIUM
     Indication: ARTHRALGIA
     Dosage: 2 DF, BID
     Route: 048
     Dates: end: 2017

REACTIONS (8)
  - Incorrect drug administration duration [Unknown]
  - Cardiac failure [Recovered/Resolved]
  - Chest injury [Unknown]
  - Ulcer [Recovered/Resolved]
  - Balance disorder [Recovered/Resolved]
  - Enema administration [Unknown]
  - Splenic rupture [Recovered/Resolved]
  - Traumatic lung injury [Recovered/Resolved]

NARRATIVE: CASE EVENT DATE: 2017
